FAERS Safety Report 19489694 (Version 1)
Quarter: 2021Q3

REPORT INFORMATION
  Report Type: Report from Study
  Country: NO (occurrence: NO)
  Receive Date: 20210704
  Receipt Date: 20210704
  Transmission Date: 20211014
  Serious: Yes (Hospitalization)
  Sender: FDA-Public Use
  Company Number: NO-ROCHE-2183174

PATIENT
  Age: 57 Year
  Sex: Female

DRUGS (22)
  1. PLAVIX [Concomitant]
     Active Substance: CLOPIDOGREL BISULFATE
     Indication: ACUTE MYOCARDIAL INFARCTION
     Route: 048
     Dates: start: 20170316, end: 20170316
  2. MORFIN [Concomitant]
     Indication: ACUTE MYOCARDIAL INFARCTION
     Route: 042
     Dates: start: 20170316, end: 20170316
  3. HEPARIN [Concomitant]
     Active Substance: HEPARIN SODIUM
     Dosage: DAILY DOSE: 2500 IE
     Route: 042
     Dates: start: 20170316, end: 20170316
  4. LIPITOR [Concomitant]
     Active Substance: ATORVASTATIN CALCIUM
     Route: 048
     Dates: start: 20170410
  5. HIPREX (NORWAY) [Concomitant]
     Indication: URINARY TRACT INFECTION
     Route: 048
     Dates: start: 20170403
  6. ESOMEPRAZOL [Concomitant]
     Active Substance: ESOMEPRAZOLE
  7. TOCILIZUMAB. [Suspect]
     Active Substance: TOCILIZUMAB
     Indication: MYOCARDIAL INFARCTION
     Dosage: INFUSION START TIME: 12: 30 PM. INFUSION OVER 1 HOUR
     Route: 042
     Dates: start: 20170317
  8. AFIPRAN [Concomitant]
     Active Substance: METOCLOPRAMIDE HYDROCHLORIDE
     Indication: ACUTE MYOCARDIAL INFARCTION
     Route: 042
     Dates: start: 20170316, end: 20170316
  9. EFIENT [Concomitant]
     Active Substance: PRASUGREL HYDROCHLORIDE
     Indication: ACUTE MYOCARDIAL INFARCTION
     Route: 048
     Dates: start: 20170317, end: 20170317
  10. NEXIUM [Concomitant]
     Active Substance: ESOMEPRAZOLE MAGNESIUM
     Indication: GASTROOESOPHAGEAL REFLUX DISEASE
     Route: 048
     Dates: start: 20170318, end: 20170403
  11. LIPITOR [Concomitant]
     Active Substance: ATORVASTATIN CALCIUM
     Indication: ACUTE MYOCARDIAL INFARCTION
     Route: 048
     Dates: start: 20170316, end: 20170410
  12. DALACIN [Concomitant]
     Active Substance: CLINDAMYCIN
     Route: 048
  13. ISOPTIN [Concomitant]
     Active Substance: VERAPAMIL HYDROCHLORIDE
     Route: 065
     Dates: start: 20170316, end: 20170316
  14. NEXIUM [Concomitant]
     Active Substance: ESOMEPRAZOLE MAGNESIUM
     Route: 048
     Dates: start: 20170403
  15. ALBYL?E [Concomitant]
     Active Substance: ASPIRIN\MAGNESIUM OXIDE
     Indication: ACUTE MYOCARDIAL INFARCTION
     Route: 048
     Dates: start: 20170317
  16. ASPIRIN. [Concomitant]
     Active Substance: ASPIRIN
  17. ACETYLSALICYLSYRE [Concomitant]
     Active Substance: ASPIRIN
     Indication: ACUTE MYOCARDIAL INFARCTION
     Route: 048
     Dates: start: 20170316, end: 20170316
  18. HEPARIN [Concomitant]
     Active Substance: HEPARIN SODIUM
     Indication: ACUTE MYOCARDIAL INFARCTION
     Dosage: DAILY  DOSE: 5000 IE
     Route: 042
     Dates: start: 20170316, end: 20170316
  19. EFIENT [Concomitant]
     Active Substance: PRASUGREL HYDROCHLORIDE
     Route: 048
     Dates: start: 20170318
  20. PRASUGREL. [Concomitant]
     Active Substance: PRASUGREL
  21. ATORVASTATIN [Concomitant]
     Active Substance: ATORVASTATIN
  22. KLINDAMYCIN [Concomitant]
     Active Substance: CLINDAMYCIN PHOSPHATE
     Dosage: 300 MG X 3 OVER A LONGER PERIOD

REACTIONS (1)
  - Breast cancer [Recovering/Resolving]

NARRATIVE: CASE EVENT DATE: 20171227
